FAERS Safety Report 20103675 (Version 1)
Quarter: 2021Q4

REPORT INFORMATION
  Report Type: Spontaneous
  Country: DE (occurrence: DE)
  Receive Date: 20211123
  Receipt Date: 20211123
  Transmission Date: 20220304
  Serious: Yes (Life-Threatening, Other)
  Sender: FDA-Public Use
  Company Number: DE-NOVPHSZ-PHHY2018DE200981

PATIENT
  Sex: Male

DRUGS (15)
  1. VALSARTAN [Suspect]
     Active Substance: VALSARTAN
     Indication: Essential hypertension
     Dosage: UNK UNK, QD
     Route: 065
     Dates: start: 2012, end: 2018
  2. VALSARTAN [Suspect]
     Active Substance: VALSARTAN
     Indication: Essential hypertension
     Dosage: 160 MILLIGRAM, QD
     Route: 048
     Dates: start: 20150709, end: 201810
  3. NORFLEX                            /00018303/ [Concomitant]
     Indication: Product used for unknown indication
     Dosage: 100 MILLIGRAM (RETARD TABLETS)
     Route: 065
  4. ASPIRIN [Concomitant]
     Active Substance: ASPIRIN
     Indication: Product used for unknown indication
     Dosage: UNK
     Route: 065
     Dates: start: 20140815
  5. SIMVASTATIN [Concomitant]
     Active Substance: SIMVASTATIN
     Indication: Product used for unknown indication
     Dosage: 20 MILLIGRAM
     Route: 065
  6. ETORICOXIB [Concomitant]
     Active Substance: ETORICOXIB
     Indication: Product used for unknown indication
     Dosage: UNK
     Route: 065
     Dates: start: 20181012
  7. ARCOXIA [Concomitant]
     Active Substance: ETORICOXIB
     Indication: Product used for unknown indication
     Dosage: 90 MILLIGRAM
     Route: 065
  8. CIPROFLOXACIN ABZ [Concomitant]
     Indication: Product used for unknown indication
     Dosage: 500 MILLIGRAM
     Route: 065
  9. PREDNISOLON                        /00016201/ [Concomitant]
     Indication: Product used for unknown indication
     Dosage: 20 MILLIGRAM
     Route: 065
  10. METOPROLOL SUCCINATE [Concomitant]
     Active Substance: METOPROLOL SUCCINATE
     Indication: Product used for unknown indication
     Dosage: 95 MILLIGRAM (RETARD TABLETS)
     Route: 065
  11. IBUPROFEN [Concomitant]
     Active Substance: IBUPROFEN
     Indication: Product used for unknown indication
     Dosage: 600 (UNITS NOT SPECIFIED)
     Route: 065
  12. DICLOFENAC RATIOPHARM              /00372302/ [Concomitant]
     Indication: Product used for unknown indication
     Dosage: 75 MILLIGRAM (RETARD CAPSULES)
     Route: 065
  13. VOLTAREN RESINAT                   /00372302/ [Concomitant]
     Indication: Product used for unknown indication
     Dosage: UNK
     Route: 065
  14. BISOPROLOL FUMARATE [Concomitant]
     Active Substance: BISOPROLOL FUMARATE
     Indication: Product used for unknown indication
     Dosage: UNK
     Route: 065
     Dates: start: 20170315
  15. TRAMADOL [Concomitant]
     Active Substance: TRAMADOL
     Indication: Product used for unknown indication
     Dosage: UNK (DROPS)
     Route: 065

REACTIONS (12)
  - Fear of disease [Unknown]
  - Cerebrovascular accident [Unknown]
  - Anxiety disorder [Unknown]
  - Personality disorder [Unknown]
  - Emotional distress [Unknown]
  - Exposure to toxic agent [Unknown]
  - Hyperhidrosis [Not Recovered/Not Resolved]
  - Quality of life decreased [Unknown]
  - Personality change [Unknown]
  - Depression [Unknown]
  - Pruritus [Not Recovered/Not Resolved]
  - Cough [Not Recovered/Not Resolved]

NARRATIVE: CASE EVENT DATE: 20140423
